FAERS Safety Report 4676593-6 (Version None)
Quarter: 2005Q2

REPORT INFORMATION
  Report Type: 
  Country: None (occurrence: None)
  Receive Date: 20050527
  Receipt Date: 20050224
  Transmission Date: 20051028
  Serious: Yes (Hospitalization, Disabling)
  Sender: FDA-Public Use
  Company Number: US-ROCHE-397552

PATIENT
  Age: 16 Year
  Sex: Male
  Weight: 83.9 kg

DRUGS (1)
  1. ACCUTANE [Suspect]
     Indication: ACNE
     Route: 048
     Dates: start: 19920305, end: 19920815

REACTIONS (24)
  - ABSCESS [None]
  - ALOPECIA [None]
  - ANHEDONIA [None]
  - CAROTIDYNIA [None]
  - CROHN'S DISEASE [None]
  - DRY EYE [None]
  - DRY SKIN [None]
  - DYSPEPSIA [None]
  - DYSPHAGIA [None]
  - GASTROINTESTINAL DISORDER [None]
  - ILL-DEFINED DISORDER [None]
  - INFLAMMATORY BOWEL DISEASE [None]
  - INTESTINAL HAEMORRHAGE [None]
  - LIP DRY [None]
  - MONONUCLEOSIS SYNDROME [None]
  - MULTI-ORGAN DISORDER [None]
  - NASAL CONGESTION [None]
  - NASAL DRYNESS [None]
  - PHARYNGOLARYNGEAL PAIN [None]
  - POLYTRAUMATISM [None]
  - PRURITUS ANI [None]
  - RECTAL HAEMORRHAGE [None]
  - RHINITIS [None]
  - SKIN PAPILLOMA [None]
